FAERS Safety Report 5880517-3 (Version None)
Quarter: 2008Q3

REPORT INFORMATION
  Report Type: 
  Country: None (occurrence: None)
  Receive Date: 20080912
  Receipt Date: 20080902
  Transmission Date: 20090109
  Serious: Yes (Life-Threatening, Hospitalization, Other)
  Sender: FDA-Public Use
  Company Number: DE-ELI_LILLY_AND_COMPANY-DE200809000515

PATIENT
  Age: 49 Year
  Sex: Female
  Weight: 60 kg

DRUGS (2)
  1. FLUOXETINE HCL [Suspect]
     Indication: SUICIDE ATTEMPT
     Dosage: 20 MG, 50-70X/D
     Route: 048
  2. BISOPROLOL FUMARATE [Concomitant]
     Indication: HYPERTENSION
     Route: 048

REACTIONS (2)
  - ACUTE RESPIRATORY DISTRESS SYNDROME [None]
  - OVERDOSE [None]
